FAERS Safety Report 23447167 (Version 2)
Quarter: 2024Q1

REPORT INFORMATION
  Report Type: Report from Study
  Country: US (occurrence: US)
  Receive Date: 20240126
  Receipt Date: 20240314
  Transmission Date: 20240410
  Serious: Yes (Other)
  Sender: FDA-Public Use
  Company Number: US-UCBSA-2024002598

PATIENT
  Age: 61 Year
  Sex: Female
  Weight: 56.25 kg

DRUGS (19)
  1. LACOSAMIDE [Suspect]
     Active Substance: LACOSAMIDE
     Indication: Epilepsy
     Dosage: 100 MILLIGRAM, 2X/DAY (BID)
     Route: 048
     Dates: start: 2021
  2. ACETAMINOPHEN\CODEINE PHOSPHATE [Concomitant]
     Active Substance: ACETAMINOPHEN\CODEINE PHOSPHATE
     Indication: Product used for unknown indication
     Dosage: 1 DOSAGE FORM, 4X/DAY (QID) (ACETAMINOPHEN 300 MG;CODEINE 30 MG)
     Route: 048
     Dates: start: 20230213
  3. ALBUTEROL SULFATE [Concomitant]
     Active Substance: ALBUTEROL SULFATE
     Indication: Product used for unknown indication
     Dosage: INHALE 2 PUFF(S) EVERY 4 HOURS
     Dates: start: 20230213
  4. BOTOX [Concomitant]
     Active Substance: ONABOTULINUMTOXINA
     Indication: Product used for unknown indication
     Dosage: INJECT 155 UNITS IM ONCE EVERY 3 MONTHS
     Route: 030
     Dates: start: 20231120
  5. BUSPIRONE [Concomitant]
     Active Substance: BUSPIRONE HYDROCHLORIDE
     Indication: Product used for unknown indication
     Dosage: 10 MILLIGRAM, TAKE 1 TABLET BY MOUTH TWICE DAILY
     Route: 048
     Dates: start: 20230213
  6. DEXAMETHASONE SODIUM PHOSPHATE [Concomitant]
     Active Substance: DEXAMETHASONE PHOSPHATE\DEXAMETHASONE SODIUM PHOSPHATE
     Indication: Product used for unknown indication
     Dosage: TAKE 1 ML BY INJECTION ROUTE
     Dates: start: 20231003
  7. DEXAMETHASONE SODIUM PHOSPHATE [Concomitant]
     Active Substance: DEXAMETHASONE PHOSPHATE\DEXAMETHASONE SODIUM PHOSPHATE
     Dosage: RIGHT SHOULDER SUBACROMIAL STEROID INJECTION
     Dates: start: 20231031
  8. DEXILANT [Concomitant]
     Active Substance: DEXLANSOPRAZOLE
     Indication: Product used for unknown indication
     Dosage: 60 MILLIGRAM, TAKE 1 CAPSULE(S) EVERY DAY BY ORAL ROUTE FOR 56 DAYS.
     Route: 048
     Dates: start: 20230213
  9. GABAPENTIN [Concomitant]
     Active Substance: GABAPENTIN
     Indication: Product used for unknown indication
     Dosage: 300 MILLIGRAM, TAKE 1 CAPSULE(S) 3 TIMES A DAY BY ORAL ROUTE
     Route: 048
     Dates: start: 20230213
  10. IBUPROFEN [Concomitant]
     Active Substance: IBUPROFEN
     Indication: Product used for unknown indication
     Dosage: 800 MILLIGRAM, 3X/DAY (TID)
     Route: 048
     Dates: start: 20230213
  11. LISINOPRIL [Concomitant]
     Active Substance: LISINOPRIL
     Indication: Product used for unknown indication
     Dosage: 5 MILLIGRAM, TAKE 1 TABLET(S) EVERY DAY BY ORAL ROUTE.
     Route: 048
     Dates: start: 20230213
  12. SIMVASTATIN [Concomitant]
     Active Substance: SIMVASTATIN
     Indication: Product used for unknown indication
     Dosage: 10 MILLIGRAM, TAKE 1 TABLET(S) EVERY DAY BY ORAL ROUTE.
     Route: 048
     Dates: start: 20230213
  13. TOPAMAX [Concomitant]
     Active Substance: TOPIRAMATE
     Indication: Headache
     Dosage: 50 MILLIGRAM, TAKE 1 TABLET(S) EVERY DAY BY ORAL ROUTE AS DIRECTED FOR 90 DAYS.
     Route: 048
     Dates: start: 20230221
  14. TOPAMAX [Concomitant]
     Active Substance: TOPIRAMATE
     Dosage: 200 MILLIGRAM, TAKE 1 TABLET(S) TWICE A DAY BY ORAL ROUTE AS DIRECTED FOR 90 DAYS
     Route: 048
     Dates: start: 20230221
  15. TRELEGY ELLIPTA [Concomitant]
     Active Substance: FLUTICASONE FUROATE\UMECLIDINIUM BROMIDE\VILANTEROL TRIFENATATE
     Indication: Product used for unknown indication
     Dosage: INHALE 1 PUFF(S) EVERY DAY BY INHALATION ROUTE
     Dates: start: 20230213
  16. VITAMIN D NOS [Concomitant]
     Active Substance: VITAMIN D NOS
     Indication: Product used for unknown indication
     Dosage: UNK
     Dates: start: 20231129
  17. TETANUS TOXOID, REDUCED DIPHTHERIA TOXOID AND ACELLULAR PERTUSSIS VACC [Concomitant]
     Active Substance: TETANUS TOXOID, REDUCED DIPHTHERIA TOXOID AND ACELLULAR PERTUSSIS VACCINE ADSORBED, TDAP
     Indication: Product used for unknown indication
     Dosage: UNK
     Dates: start: 20210325, end: 20210325
  18. TETANUS TOXOID, REDUCED DIPHTHERIA TOXOID AND ACELLULAR PERTUSSIS VACC [Concomitant]
     Active Substance: TETANUS TOXOID, REDUCED DIPHTHERIA TOXOID AND ACELLULAR PERTUSSIS VACCINE ADSORBED, TDAP
     Dosage: UNK
     Dates: start: 20210415, end: 20210415
  19. TETANUS TOXOID, REDUCED DIPHTHERIA TOXOID AND ACELLULAR PERTUSSIS VACC [Concomitant]
     Active Substance: TETANUS TOXOID, REDUCED DIPHTHERIA TOXOID AND ACELLULAR PERTUSSIS VACCINE ADSORBED, TDAP
     Dosage: UNK
     Dates: start: 20210528, end: 20210528

REACTIONS (17)
  - Epilepsy [Not Recovered/Not Resolved]
  - Hyperlipidaemia [Unknown]
  - Essential hypertension [Unknown]
  - Tendonitis [Unknown]
  - Muscle strain [Unknown]
  - Botulinum toxin injection [Not Recovered/Not Resolved]
  - Tension headache [Unknown]
  - Giant cell arteritis [Unknown]
  - Headache [Unknown]
  - Stress [Unknown]
  - Panic attack [Unknown]
  - Feeling abnormal [Unknown]
  - Insomnia [Unknown]
  - Dizziness [Unknown]
  - Arthralgia [Unknown]
  - Dyspnoea [Unknown]
  - Contusion [Unknown]

NARRATIVE: CASE EVENT DATE: 20230213
